FAERS Safety Report 5766002-8 (Version None)
Quarter: 2008Q2

REPORT INFORMATION
  Report Type: 
  Country: None (occurrence: None)
  Receive Date: 20080609
  Receipt Date: 20080218
  Transmission Date: 20081010
  Serious: No
  Sender: FDA-Public Use
  Company Number: 002#2#2008-00016

PATIENT
  Age: 60 Year
  Sex: Female
  Weight: 77.1115 kg

DRUGS (4)
  1. NEUPRO [Suspect]
     Indication: RESTLESS LEGS SYNDROME
     Dosage: 6MG/24H,1 IN 1 D, TRANSDERMAL
     Route: 062
     Dates: start: 20071118, end: 20071230
  2. CYMBALTA [Concomitant]
  3. AMBIEN CR [Concomitant]
  4. REQUIP [Concomitant]

REACTIONS (6)
  - APPLICATION SITE ERYTHEMA [None]
  - APPLICATION SITE PRURITUS [None]
  - APPLICATION SITE REACTION [None]
  - APPLICATION SITE SWELLING [None]
  - APPLICATION SITE WARMTH [None]
  - OFF LABEL USE [None]
